FAERS Safety Report 7809139 (Version 2)
Quarter: 2013Q1

REPORT INFORMATION
  Report Type: Spontaneous
  Country: US (occurrence: US)
  Receive Date: 20110211
  Receipt Date: 20130301
  Transmission Date: 20140127
  Serious: Yes (Hospitalization, Other)
  Sender: FDA-Public Use
  Company Number: US-JNJFOC-20100805550

PATIENT
  Sex: Male

DRUGS (2)
  1. LEVAQUIN [Suspect]
     Indication: POST PROCEDURAL INFECTION
     Route: 048
     Dates: start: 20060101, end: 20081231
  2. LEVAQUIN [Suspect]
     Indication: POST PROCEDURAL INFECTION
     Dosage: 500MG/100ML
     Route: 042
     Dates: start: 20080117, end: 20080119

REACTIONS (5)
  - Tendon disorder [Unknown]
  - Tendon disorder [Unknown]
  - Rotator cuff syndrome [Unknown]
  - Rotator cuff syndrome [Unknown]
  - Tendonitis [Unknown]
